FAERS Safety Report 14924813 (Version 1)
Quarter: 2018Q2

REPORT INFORMATION
  Report Type: Spontaneous
  Country: US (occurrence: US)
  Receive Date: 20180522
  Receipt Date: 20180522
  Transmission Date: 20180711
  Serious: No
  Sender: FDA-Public Use
  Company Number: US-TARO-2017TAR01086

PATIENT
  Sex: Female

DRUGS (4)
  1. CLOTRIMAZOLE VAGINAL CREAM USP 2% 3 DAY [Suspect]
     Active Substance: CLOTRIMAZOLE
     Indication: DYSURIA
     Dosage: 0.5 DOSAGE UNITS (HALF FULL APPLICATOR), ONCE
     Route: 067
     Dates: start: 20171217, end: 20171217
  2. CLOTRIMAZOLE VAGINAL CREAM USP 2% 3 DAY [Suspect]
     Active Substance: CLOTRIMAZOLE
     Dosage: UNK, 2X/DAY ^1 AND 1/2 INCH RIBBON VIA FINGER^
     Route: 061
     Dates: start: 20171217, end: 201712
  3. UNSPECIFIED MEDICATIONS [Concomitant]
     Active Substance: UNSPECIFIED INGREDIENT
  4. ELIQUIS [Concomitant]
     Active Substance: APIXABAN

REACTIONS (2)
  - Application site pain [Recovered/Resolved]
  - Product quality issue [Recovered/Resolved]

NARRATIVE: CASE EVENT DATE: 20171217
